FAERS Safety Report 6873335-0 (Version None)
Quarter: 2010Q3

REPORT INFORMATION
  Report Type: 
  Country: None (occurrence: None)
  Receive Date: 20100723
  Receipt Date: 20090218
  Transmission Date: 20110219
  Serious: No
  Sender: FDA-Public Use
  Company Number: US-PFIZER INC-2008155342

PATIENT
  Sex: Female
  Weight: 81.646 kg

DRUGS (8)
  1. CHANTIX [Suspect]
     Indication: SMOKING CESSATION THERAPY
     Dosage: 0.5 MG, 1X/DAY
     Route: 048
     Dates: start: 20081208, end: 20081209
  2. VENLAFAXINE HYDROCHLORIDE [Concomitant]
     Dosage: 225MG DAILY
  3. PRILOSEC [Concomitant]
     Dosage: 40 MG, 2X/DAY
  4. LYRICA [Concomitant]
     Dosage: 100 MG, 2X/DAY
     Route: 048
  5. LYRICA [Concomitant]
     Route: 048
  6. XANAX [Concomitant]
     Dosage: 0.5 MG, AS NEEDED
     Route: 048
  7. XANAX [Concomitant]
     Route: 048
  8. VITAMIN B-12 [Concomitant]
     Dosage: UNK
     Route: 030

REACTIONS (1)
  - SUNBURN [None]
